FAERS Safety Report 20967533 (Version 1)
Quarter: 2022Q2

REPORT INFORMATION
  Report Type: Spontaneous
  Country: US (occurrence: US)
  Receive Date: 20220616
  Receipt Date: 20220616
  Transmission Date: 20220721
  Serious: No
  Sender: FDA-Public Use
  Company Number: US-PFIZER INC-202200732216

PATIENT
  Age: 34 Year
  Sex: Female
  Weight: 57.15 kg

DRUGS (3)
  1. NEURONTIN [Suspect]
     Active Substance: GABAPENTIN
     Dosage: UNK
  2. NEURONTIN [Suspect]
     Active Substance: GABAPENTIN
     Dosage: TAKE 1 CAPSULE (100 MG TOTAL) BY MOUTH 2(TWO) TIMES A DAY FOR 14 DAYS
     Route: 048
     Dates: start: 20220421, end: 20220516
  3. NEURONTIN [Suspect]
     Active Substance: GABAPENTIN
     Dosage: 100 MG, 1X/DAY, PATIENT TAKING DIFFERENTLY: TAKE 100 MG BY MOUTH NIGHTLY)
     Route: 048
     Dates: start: 20220516, end: 20220530

REACTIONS (4)
  - Off label use [Unknown]
  - Drug ineffective for unapproved indication [Unknown]
  - Drug intolerance [Unknown]
  - Intentional product misuse [Unknown]
